FAERS Safety Report 5333204-4 (Version None)
Quarter: 2007Q2

REPORT INFORMATION
  Report Type: 
  Country: None (occurrence: None)
  Receive Date: 20070521
  Receipt Date: 20070521
  Transmission Date: 20071010
  Serious: Yes (Hospitalization)
  Sender: FDA-Public Use
  Company Number: None

PATIENT
  Sex: Male
  Weight: 68 kg

DRUGS (21)
  1. TEMOZOLOMIDE [Suspect]
     Dosage: 2940 MG
     Dates: start: 20070409, end: 20070429
  2. AMIODARONE HCL [Concomitant]
  3. ARICEPT [Concomitant]
  4. ASPIRIN [Concomitant]
  5. COMPAZINE [Concomitant]
  6. DECADRON [Concomitant]
  7. DIFLUCAN [Concomitant]
  8. ISORDIL [Concomitant]
  9. KYTRIL [Concomitant]
  10. LOPRESSOR [Concomitant]
  11. MIRACLE MOUTH WASH [Concomitant]
  12. NAMENDA [Concomitant]
  13. NITROSTAT [Concomitant]
  14. PACERONE [Concomitant]
  15. PREVACID [Concomitant]
  16. REMERON [Concomitant]
  17. GUAIFENESIN [Concomitant]
  18. SENEKOT S [Concomitant]
  19. TRAMADOL HCL [Concomitant]
  20. TYLENOL [Concomitant]
  21. VASOTEC [Concomitant]

REACTIONS (6)
  - DYSLIPIDAEMIA [None]
  - HYPERKALAEMIA [None]
  - METASTASES TO LUNG [None]
  - OEDEMA PERIPHERAL [None]
  - PULMONARY EMBOLISM [None]
  - THROMBOCYTOPENIA [None]
